FAERS Safety Report 7474890-2 (Version None)
Quarter: 2011Q2

REPORT INFORMATION
  Report Type: 
  Country: None (occurrence: None)
  Receive Date: 20110512
  Receipt Date: 20110407
  Transmission Date: 20111010
  Serious: Yes (Other)
  Sender: FDA-Public Use
  Company Number: US-BAYER-201024040NA

PATIENT
  Age: 18 Year
  Sex: Female
  Weight: 56.689 kg

DRUGS (5)
  1. FEXOFENADINE HCL [Concomitant]
     Dosage: 180 MG, UNK
  2. FLUOXETINE HYDROCHLORIDE [Concomitant]
     Dosage: 10 MG, UNK
  3. YAZ [Suspect]
     Indication: PRODUCT USED FOR UNKNOWN INDICATION
     Dosage: UNK UNK, UNK
     Route: 048
     Dates: start: 20070101, end: 20091001
  4. LAMOTRIGINE [Concomitant]
     Dosage: 50 MG, UNK
  5. PROAIR HFA [Concomitant]
     Dosage: 90 MCG/24HR, UNK

REACTIONS (2)
  - GALLBLADDER DISORDER [None]
  - UNEVALUABLE EVENT [None]
